FAERS Safety Report 8373392-9 (Version None)
Quarter: 2012Q2

REPORT INFORMATION
  Report Type: 
  Country: None (occurrence: None)
  Receive Date: 20120521
  Receipt Date: 20120518
  Transmission Date: 20120825
  Serious: Yes (Other)
  Sender: FDA-Public Use
  Company Number: US-PFIZER INC-2012121424

PATIENT
  Sex: Female
  Weight: 52.154 kg

DRUGS (1)
  1. NORPACE [Suspect]
     Dosage: 100 MG, 2X/DAY
     Dates: start: 19950701, end: 20100801

REACTIONS (3)
  - DISCOMFORT [None]
  - CARDIAC DISORDER [None]
  - ARTERIOSPASM CORONARY [None]
